FAERS Safety Report 11855322 (Version 1)
Quarter: 2015Q4

REPORT INFORMATION
  Report Type: Report from Study
  Country: BE (occurrence: BE)
  Receive Date: 20151221
  Receipt Date: 20151221
  Transmission Date: 20160305
  Serious: Yes (Death, Hospitalization, Other)
  Sender: FDA-Public Use
  Company Number: PHHY2015BE138661

PATIENT
  Age: 46 Year
  Sex: Male
  Weight: 80 kg

DRUGS (6)
  1. TRAMETINIB [Suspect]
     Active Substance: TRAMETINIB
     Indication: METASTASES TO MENINGES
  2. KEPPRA [Concomitant]
     Active Substance: LEVETIRACETAM
     Indication: EPILEPSY
     Dosage: 1 G, BID
     Route: 042
     Dates: start: 20150813
  3. TRAMETINIB [Suspect]
     Active Substance: TRAMETINIB
     Indication: METASTATIC MALIGNANT MELANOMA
     Dosage: 2 MG, QD
     Route: 048
     Dates: start: 20150310
  4. DABRAFENIB [Suspect]
     Active Substance: DABRAFENIB
     Indication: METASTATIC MALIGNANT MELANOMA
     Dosage: 75 MG, QD
     Route: 048
     Dates: start: 20150310
  5. DABRAFENIB [Suspect]
     Active Substance: DABRAFENIB
     Indication: METASTASES TO MENINGES
  6. KEPPRA [Concomitant]
     Active Substance: LEVETIRACETAM
     Dosage: 1 G, BID
     Route: 042
     Dates: start: 20150827

REACTIONS (17)
  - Malignant neoplasm progression [Fatal]
  - Haematuria [Fatal]
  - Hypertonia [Fatal]
  - Disorientation [Fatal]
  - Aphasia [Fatal]
  - Brain oedema [Fatal]
  - General physical health deterioration [Recovered/Resolved]
  - Off label use [Unknown]
  - Somnolence [Fatal]
  - General physical health deterioration [Recovered/Resolved]
  - Therapeutic response decreased [Recovered/Resolved]
  - Metastases to meninges [Fatal]
  - Epilepsy [Fatal]
  - Confusional state [Fatal]
  - Agitation [Recovering/Resolving]
  - Neurological decompensation [Fatal]
  - Metastases to liver [Unknown]

NARRATIVE: CASE EVENT DATE: 20150625
